FAERS Safety Report 7555002-3 (Version None)
Quarter: 2011Q2

REPORT INFORMATION
  Report Type: 
  Country: None (occurrence: None)
  Receive Date: 20110617
  Receipt Date: 20110608
  Transmission Date: 20111010
  Serious: Yes (Hospitalization)
  Sender: FDA-Public Use
  Company Number: FR-VERTEX PHARMACEUTICALS INC.-AE-2011-000083

PATIENT
  Sex: Female
  Weight: 56 kg

DRUGS (7)
  1. BEZAFIBRATE [Concomitant]
     Indication: HYPERTRIGLYCERIDAEMIA
  2. VX-950 [Suspect]
     Indication: HEPATITIS C
     Route: 048
     Dates: start: 20110218, end: 20110513
  3. METFORMIN HCL [Concomitant]
     Indication: DIABETES MELLITUS
     Route: 048
     Dates: start: 20101201
  4. FENOFIBRATE [Concomitant]
     Indication: HYPERTRIGLYCERIDAEMIA
     Route: 048
     Dates: start: 20101201
  5. RIBAVIRIN [Concomitant]
     Indication: HEPATITIS C
     Route: 048
  6. GLYBURIDE [Concomitant]
     Indication: DIABETES MELLITUS
     Dates: start: 20101201
  7. PEGINTERFERON ALFA-2A [Concomitant]
     Indication: HEPATITIS C
     Route: 058

REACTIONS (3)
  - ANAEMIA [None]
  - DIARRHOEA [None]
  - RENAL FAILURE [None]
